FAERS Safety Report 6963344-5 (Version None)
Quarter: 2010Q3

REPORT INFORMATION
  Report Type: 
  Country: None (occurrence: None)
  Receive Date: 20100902
  Receipt Date: 20100825
  Transmission Date: 20110219
  Serious: Yes (Hospitalization, Other)
  Sender: FDA-Public Use
  Company Number: TW-BAXTER-2010BH018681

PATIENT
  Age: 47 Year
  Sex: Female

DRUGS (4)
  1. DIANEAL [Suspect]
     Indication: PERITONEAL DIALYSIS
     Route: 033
     Dates: start: 20100618, end: 20100701
  2. DIANEAL [Suspect]
     Route: 033
     Dates: start: 20100618, end: 20100701
  3. DIANEAL [Suspect]
     Route: 033
     Dates: start: 20100702
  4. ROCEPHIN [Suspect]
     Indication: WHITE BLOOD CELL COUNT INCREASED
     Route: 065
     Dates: start: 20100703

REACTIONS (4)
  - BODY TEMPERATURE INCREASED [None]
  - DRUG HYPERSENSITIVITY [None]
  - PERITONEAL CLOUDY EFFLUENT [None]
  - RASH [None]
